FAERS Safety Report 21832783 (Version 3)
Quarter: 2023Q1

REPORT INFORMATION
  Report Type: Report from Study
  Country: KR (occurrence: KR)
  Receive Date: 20230106
  Receipt Date: 20230208
  Transmission Date: 20230417
  Serious: Yes (Death, Life-Threatening, Other)
  Sender: FDA-Public Use
  Company Number: KR-JNJFOC-20221240246

PATIENT
  Age: 81 Year
  Sex: Female
  Weight: 63 kg

DRUGS (23)
  1. AMIVANTAMAB [Suspect]
     Active Substance: AMIVANTAMAB
     Indication: Non-small cell lung cancer metastatic
     Route: 042
     Dates: start: 20210713, end: 20221213
  2. BISOPROLOL FUMARATE [Concomitant]
     Active Substance: BISOPROLOL FUMARATE
     Indication: Hypertension
     Route: 048
     Dates: start: 20180327
  3. LIPITOR [Concomitant]
     Active Substance: ATORVASTATIN CALCIUM
     Indication: Hyperlipidaemia
     Route: 048
     Dates: start: 20200921
  4. METHYLPREDNISOLONE ACEPONATE [Concomitant]
     Active Substance: METHYLPREDNISOLONE ACEPONATE
     Indication: Rash
     Dosage: 1 (UNITS NOT PROVIDED)
     Route: 061
     Dates: start: 20210810
  5. BENZYDAMINE [Concomitant]
     Active Substance: BENZYDAMINE
     Indication: Stomatitis
     Dosage: 1 (NO UNITS PROVIDED)
     Route: 050
     Dates: start: 20210824
  6. RECOMBINANT HUMAN EPIDERMAL GROWTH FACTOR FOR EXTERNAL USE [Concomitant]
     Indication: Rash
     Dosage: 1 (UNITS NOT PROVIDED)
     Route: 061
     Dates: start: 20210915
  7. RECOMBINANT HUMAN EPIDERMAL GROWTH FACTOR FOR EXTERNAL USE [Concomitant]
     Indication: Paronychia
  8. ESROBAN [Concomitant]
     Indication: Paronychia
     Dosage: 1 (UNITS NOT PROVIDED)
     Route: 061
     Dates: start: 20211116
  9. DESOXIMETASONE [Concomitant]
     Active Substance: DESOXIMETASONE
     Indication: Rash
     Dosage: 1 (UNITS NOT PROVIDED)
     Route: 061
     Dates: start: 20211214
  10. SERTACONAZOLE NITRATE [Concomitant]
     Active Substance: SERTACONAZOLE NITRATE
     Indication: Rash
     Dosage: 1 (UNITS NOT PROVIDED)
     Route: 061
     Dates: start: 20211214
  11. DIABEX [Concomitant]
     Active Substance: METFORMIN HYDROCHLORIDE
     Indication: Type 2 diabetes mellitus
     Route: 048
     Dates: start: 20220122
  12. LYRICA [Concomitant]
     Active Substance: PREGABALIN
     Indication: Paraesthesia
     Route: 048
     Dates: start: 20220419
  13. HYDROXYZINE HYDROCHLORIDE [Concomitant]
     Active Substance: HYDROXYZINE HYDROCHLORIDE
     Indication: Rash
     Route: 048
     Dates: start: 20220531
  14. GINEXIN-F [Concomitant]
     Indication: Coronary artery disease
     Route: 048
     Dates: start: 20220617
  15. FUMELON [FLUOROMETHOLONE] [Concomitant]
     Indication: Age-related macular degeneration
     Dosage: 1 (UNITS NOT PROVIDED)
     Route: 047
     Dates: start: 20220801
  16. LAFUTIDINE [Concomitant]
     Active Substance: LAFUTIDINE
     Indication: Dyspepsia
     Route: 048
     Dates: start: 20220809
  17. TEARIN FREE [Concomitant]
     Indication: Age-related macular degeneration
     Dosage: 1 (UNITS NOT PROVIDED)
     Route: 047
     Dates: start: 20220830
  18. PLAVIX [Concomitant]
     Active Substance: CLOPIDOGREL BISULFATE
     Indication: Coronary artery disease
     Route: 048
     Dates: start: 20221021
  19. LACTICARE HC [HYDROCORTISONE] [Concomitant]
     Indication: Rash
     Dosage: 1 (UNITS NOT PROVIDED)
     Route: 061
     Dates: start: 20221213
  20. SMOFLIPID [Concomitant]
     Active Substance: FISH OIL\MEDIUM-CHAIN TRIGLYCERIDES\OLIVE OIL\SOYBEAN OIL
     Indication: Nutritional supplementation
     Route: 042
     Dates: start: 20221213, end: 20221213
  21. DOXYCYCLINE [Concomitant]
     Active Substance: DOXYCYCLINE
     Indication: Rash
     Route: 048
     Dates: start: 20211007
  22. DOXYCYCLINE [Concomitant]
     Active Substance: DOXYCYCLINE
     Indication: Paronychia
  23. LEVOFLOXACIN [Concomitant]
     Active Substance: LEVOFLOXACIN
     Indication: Age-related macular degeneration
     Dosage: 1 (UNITS NOT PROVIDED)
     Route: 047
     Dates: start: 20220809

REACTIONS (1)
  - Myocardial infarction [Fatal]

NARRATIVE: CASE EVENT DATE: 20221218
